FAERS Safety Report 10090970 (Version 2)
Quarter: 2014Q2

REPORT INFORMATION
  Report Type: Spontaneous
  Country: US (occurrence: US)
  Receive Date: 20140421
  Receipt Date: 20140421
  Transmission Date: 20141212
  Serious: Yes (Other)
  Sender: FDA-Public Use
  Company Number: US-GILEAD-2012-0064186

PATIENT
  Sex: Male

DRUGS (4)
  1. LETAIRIS [Suspect]
     Indication: PULMONARY HYPERTENSION
     Dosage: 10 MG, QD
     Route: 048
     Dates: start: 20120207, end: 20121113
  2. LETAIRIS [Suspect]
     Indication: HIV INFECTION
  3. VENTAVIS [Concomitant]
  4. ADCIRCA [Concomitant]

REACTIONS (1)
  - No therapeutic response [Unknown]
